FAERS Safety Report 6073641-6 (Version None)
Quarter: 2009Q1

REPORT INFORMATION
  Report Type: 
  Country: None (occurrence: None)
  Receive Date: 20090211
  Receipt Date: 20090202
  Transmission Date: 20090719
  Serious: Yes (Other)
  Sender: FDA-Public Use
  Company Number: US-ABBOTT-09P-163-0501237-00

PATIENT
  Sex: Female
  Weight: 70.37 kg

DRUGS (1)
  1. ERYTHROMYCIN LIQUID [Suspect]
     Indication: CYSTITIS
     Dates: start: 19790101

REACTIONS (4)
  - BLADDER CANCER [None]
  - CYSTITIS [None]
  - DYSURIA [None]
  - HAEMATURIA [None]
